FAERS Safety Report 6304938-X (Version None)
Quarter: 2009Q3

REPORT INFORMATION
  Report Type: 
  Country: None (occurrence: None)
  Receive Date: 20090811
  Receipt Date: 20090805
  Transmission Date: 20100115
  Serious: Yes (Hospitalization, Disabling)
  Sender: FDA-Public Use
  Company Number: JP-ASTRAZENECA-2009AP03330

PATIENT
  Age: 72 Year
  Sex: Female
  Weight: 52 kg

DRUGS (20)
  1. DIPRIVAN [Suspect]
     Indication: INDUCTION AND MAINTENANCE OF ANAESTHESIA
     Dosage: DOSE UNKNOWN
     Route: 042
     Dates: start: 20090417, end: 20090417
  2. ATARAX [Concomitant]
     Indication: PREOPERATIVE CARE
     Route: 041
     Dates: start: 20090417, end: 20090417
  3. FENTANYL [Concomitant]
     Indication: MAINTENANCE OF ANAESTHESIA
     Route: 041
     Dates: start: 20090417, end: 20090417
  4. STOGAR [Concomitant]
     Route: 048
  5. FLUITRAN [Concomitant]
     Route: 048
  6. ASPIRIN [Concomitant]
     Route: 048
  7. WARFARIN [Concomitant]
     Route: 048
  8. CALBLOCK [Concomitant]
     Route: 048
  9. TANKARU [Concomitant]
     Route: 048
  10. URSO 250 [Concomitant]
     Route: 048
  11. MUCOSTA [Concomitant]
     Route: 048
  12. LIPOVAS [Concomitant]
     Route: 048
  13. ZYRTEC [Concomitant]
     Route: 048
  14. LENDORMIN D [Concomitant]
     Route: 048
  15. MICARDIS [Concomitant]
     Route: 048
  16. TOCLASE [Concomitant]
     Route: 048
  17. LASIX [Concomitant]
     Route: 048
  18. ENSURE LIQUID [Concomitant]
     Route: 048
  19. NAUZELIN [Concomitant]
     Route: 048
  20. EPADEL S [Concomitant]
     Route: 048

REACTIONS (1)
  - ALTERED STATE OF CONSCIOUSNESS [None]
